FAERS Safety Report 5235143-6 (Version None)
Quarter: 2007Q1

REPORT INFORMATION
  Report Type: 
  Country: None (occurrence: None)
  Receive Date: 20070207
  Receipt Date: 20070129
  Transmission Date: 20070707
  Serious: Yes (Hospitalization)
  Sender: FDA-Public Use
  Company Number: B0457026A

PATIENT
  Age: 80 Year
  Sex: Male

DRUGS (8)
  1. ZANTAC [Suspect]
  2. DEXCHLORPHENIRAM.MALEATE [Concomitant]
  3. CODEINE PHOSPHATE [Concomitant]
  4. TRAPIDIL [Concomitant]
  5. GLUTATHIONE [Concomitant]
  6. STRONG NEO MINOPHAGEN C [Concomitant]
  7. PIRENZEPINE HYDROCHLORIDE [Concomitant]
  8. CELESTONE [Concomitant]

REACTIONS (8)
  - BLOOD IMMUNOGLOBULIN E INCREASED [None]
  - BLOOD LACTATE DEHYDROGENASE INCREASED [None]
  - DIABETES MELLITUS [None]
  - DRUG ERUPTION [None]
  - EOSINOPHIL COUNT INCREASED [None]
  - LYMPHADENOPATHY [None]
  - LYMPHOCYTE STIMULATION TEST POSITIVE [None]
  - WHITE BLOOD CELL COUNT INCREASED [None]
